FAERS Safety Report 20744151 (Version 1)
Quarter: 2022Q2

REPORT INFORMATION
  Report Type: Spontaneous
  Country: US (occurrence: None)
  Receive Date: 20220422
  Receipt Date: 20220422
  Transmission Date: 20220721
  Serious: Yes (Death)
  Sender: FDA-Public Use
  Company Number: None

PATIENT
  Age: 41 Year
  Sex: Female
  Weight: 79.42 kg

DRUGS (10)
  1. VERZENIO [Suspect]
     Active Substance: ABEMACICLIB
     Dosage: FREQUENCY : TWICE A DAY;?
     Route: 048
     Dates: end: 20220410
  2. ACETAMINOPHEN [Concomitant]
     Active Substance: ACETAMINOPHEN
  3. FENTANYL [Concomitant]
     Active Substance: FENTANYL
  4. FERROUS SULFATE [Concomitant]
     Active Substance: FERROUS SULFATE
  5. FOLIC ACID [Concomitant]
     Active Substance: FOLIC ACID
  6. VITAMIN C [Concomitant]
     Active Substance: ASCORBIC ACID
  7. MELATONIN [Concomitant]
     Active Substance: MELATONIN
  8. PANTOPRAZOLE [Concomitant]
     Active Substance: PANTOPRAZOLE
  9. TRIAMCINOLONE [Concomitant]
     Active Substance: TRIAMCINOLONE
  10. VITAMIN D3 [Concomitant]
     Active Substance: CHOLECALCIFEROL

REACTIONS (1)
  - Death [None]

NARRATIVE: CASE EVENT DATE: 20220410
